FAERS Safety Report 23636977 (Version 1)
Quarter: 2024Q1

REPORT INFORMATION
  Report Type: Spontaneous
  Country: RU (occurrence: RU)
  Receive Date: 20240315
  Receipt Date: 20240315
  Transmission Date: 20240409
  Serious: Yes (Other)
  Sender: FDA-Public Use
  Company Number: None

PATIENT
  Age: 2 Year
  Sex: Female
  Weight: 11.4 kg

DRUGS (4)
  1. ORKAMBI [Suspect]
     Active Substance: IVACAFTOR\LUMACAFTOR
     Indication: Cystic fibrosis
     Dosage: 1 PACKET OF GRANULES (100 MG LUMACAFTOR/ 125 MG IVACAFTOR) TAKEN EVERY 2 DAYS
     Route: 048
     Dates: start: 20230703
  2. CREON [Concomitant]
     Active Substance: PANCRELIPASE AMYLASE\PANCRELIPASE LIPASE\PANCRELIPASE PROTEASE
     Dosage: 18-22 CAPSULES PER DAY, BEFORE EACH MEAL (10000 IU/G)
     Route: 048
     Dates: start: 20210808
  3. TIGERASE [Concomitant]
     Dosage: 2.5 MG, QD
  4. URSODIOL [Concomitant]
     Active Substance: URSODIOL
     Dosage: 5.5 ML, QD
     Route: 048
     Dates: start: 20210808

REACTIONS (4)
  - Deafness [Recovering/Resolving]
  - Chronic rhinosinusitis with nasal polyps [Unknown]
  - Alanine aminotransferase increased [Unknown]
  - Aspartate aminotransferase increased [Unknown]

NARRATIVE: CASE EVENT DATE: 20240112
